FAERS Safety Report 7272929-0 (Version None)
Quarter: 2011Q1

REPORT INFORMATION
  Report Type: 
  Country: None (occurrence: None)
  Receive Date: 20110203
  Receipt Date: 20110125
  Transmission Date: 20110831
  Serious: Yes (Death)
  Sender: FDA-Public Use
  Company Number: JP-CELGENEUS-087-21880-11011899

PATIENT
  Sex: Male
  Weight: 52 kg

DRUGS (2)
  1. LENADEX [Suspect]
     Indication: MULTIPLE MYELOMA
     Route: 048
     Dates: start: 20100915, end: 20101002
  2. REVLIMID [Suspect]
     Indication: MULTIPLE MYELOMA
     Route: 048
     Dates: start: 20100915, end: 20101003

REACTIONS (4)
  - ANGIOPATHY [None]
  - CONSTIPATION [None]
  - PLATELET COUNT DECREASED [None]
  - THIRST [None]
